FAERS Safety Report 24909853 (Version 1)
Quarter: 2025Q1

REPORT INFORMATION
  Report Type: Spontaneous
  Country: US (occurrence: None)
  Receive Date: 20250131
  Receipt Date: 20250131
  Transmission Date: 20250409
  Serious: Yes (Death)
  Sender: FDA-CTU
  Company Number: None

PATIENT
  Age: 54 Year
  Sex: Male
  Weight: 119 kg

DRUGS (1)
  1. LENALIDOMIDE [Suspect]
     Active Substance: LENALIDOMIDE

REACTIONS (6)
  - Pneumonia [None]
  - Back pain [None]
  - Chest pain [None]
  - Unresponsive to stimuli [None]
  - Pulse absent [None]
  - Cardiac arrest [None]

NARRATIVE: CASE EVENT DATE: 20250115
